FAERS Safety Report 4825591-8 (Version None)
Quarter: 2005Q4

REPORT INFORMATION
  Report Type: 
  Country: None (occurrence: None)
  Receive Date: 20051111
  Receipt Date: 20050928
  Transmission Date: 20060501
  Serious: No
  Sender: FDA-Public Use
  Company Number: US-GLAXOSMITHKLINE-A0576237A

PATIENT
  Age: 74 Year
  Sex: Male

DRUGS (5)
  1. AVODART [Suspect]
     Indication: BENIGN PROSTATIC HYPERPLASIA
     Dosage: .5MG PER DAY
     Route: 048
     Dates: start: 20041001, end: 20050801
  2. CELEBREX [Concomitant]
  3. FLOMAX [Concomitant]
  4. PRAVACHOL [Concomitant]
  5. ASPIRIN [Concomitant]

REACTIONS (4)
  - CHEST PAIN [None]
  - HYPERTROPHY BREAST [None]
  - LIBIDO DECREASED [None]
  - SHOULDER PAIN [None]
